FAERS Safety Report 4500810-6 (Version None)
Quarter: 2004Q4

REPORT INFORMATION
  Report Type: 
  Country: None (occurrence: None)
  Receive Date: 20041109
  Receipt Date: 20031020
  Transmission Date: 20050328
  Serious: Yes (Disabling)
  Sender: FDA-Public Use
  Company Number: HQ3271716JUL2002

PATIENT
  Age: 50 Year
  Sex: Male

DRUGS (5)
  1. DIMETAPP [Suspect]
     Indication: NASOPHARYNGITIS
     Dosage: ORAL
     Route: 048
  2. ALKA-SELTZER PLUD COLD (ACETYLSALICYLIC ACID/CHLORPHENAMINE MALEATE/PH [Suspect]
     Indication: NASOPHARYNGITIS
     Dosage: ORAL
     Route: 048
  3. ALKA-SELTZER PLUD COLD (ACETYLSALICYLIC ACID/CHLORPHENAMINE MALEATE/PH [Suspect]
     Indication: SINUS DISORDER
     Dosage: ORAL
     Route: 048
  4. ROBITUSSIN CF (GUAIFENESIN/DEXTROMETHORPAN/PHENYLPROPANOLAMINE, SYRUP) [Suspect]
     Indication: NASOPHARYNGITIS
     Dosage: ORAL
     Route: 048
  5. ROBITUSSIN CF (GUAIFENESIN/DEXTROMETHORPAN/PHENYLPROPANOLAMINE, SYRUP) [Suspect]
     Indication: SINUS DISORDER
     Dosage: ORAL
     Route: 048

REACTIONS (5)
  - ANEURYSM [None]
  - CEREBROVASCULAR ACCIDENT [None]
  - INJURY [None]
  - MYOCARDIAL INFARCTION [None]
  - NERVOUS SYSTEM DISORDER [None]
